FAERS Safety Report 20455494 (Version 1)
Quarter: 2022Q1

REPORT INFORMATION
  Report Type: Spontaneous
  Country: US (occurrence: None)
  Receive Date: 20220210
  Receipt Date: 20220210
  Transmission Date: 20220424
  Serious: Yes (Death)
  Sender: FDA-Public Use
  Company Number: None

PATIENT
  Age: 78 Year
  Sex: Female

DRUGS (1)
  1. PROLIA [Suspect]
     Active Substance: DENOSUMAB
     Indication: Osteoporosis
     Dosage: 60MG EVERY 6 MONTHS OTHER SUBCUTANEOUS?
     Route: 058
     Dates: start: 20190201, end: 20210928

REACTIONS (1)
  - Death [None]

NARRATIVE: CASE EVENT DATE: 20220203
